FAERS Safety Report 9985450 (Version 1)
Quarter: 2014Q1

REPORT INFORMATION
  Report Type: Spontaneous
  Country: US (occurrence: US)
  Receive Date: 20140307
  Receipt Date: 20140307
  Transmission Date: 20141002
  Serious: Yes (Other)
  Sender: FDA-Public Use
  Company Number: US-TEVA-466963USA

PATIENT
  Age: 66 Year
  Sex: Male

DRUGS (7)
  1. CLONIDINE [Suspect]
     Indication: HYPERTENSION
     Route: 062
     Dates: start: 20131221
  2. CLONIDINE [Concomitant]
     Indication: HYPERTENSION
     Route: 048
  3. TENEX [Concomitant]
     Indication: HYPERTENSION
  4. LISINOPRIL [Concomitant]
     Indication: HYPERTENSION
  5. CARVEDILOL [Concomitant]
  6. SINEMET [Concomitant]
  7. GLUCOPHAGE [Concomitant]

REACTIONS (7)
  - Application site infection [Recovered/Resolved]
  - Hypersensitivity [Recovered/Resolved]
  - Application site erythema [Recovered/Resolved]
  - Application site pruritus [Recovered/Resolved]
  - Urticaria [Recovered/Resolved]
  - Application site burn [Recovered/Resolved]
  - Application site scar [Not Recovered/Not Resolved]
